FAERS Safety Report 10305764 (Version 1)
Quarter: 2014Q3

REPORT INFORMATION
  Report Type: Spontaneous
  Country: US (occurrence: None)
  Receive Date: 20140711
  Receipt Date: 20140711
  Transmission Date: 20150326
  Serious: No
  Sender: FDA-Public Use
  Company Number: None

PATIENT
  Age: 66 Year
  Sex: Female
  Weight: 90.72 kg

DRUGS (1)
  1. SMZ/TMP DS 800-160 [Suspect]
     Active Substance: SULFAMETHOXAZOLE\TRIMETHOPRIM
     Indication: POST PROCEDURAL INFECTION
     Route: 048
     Dates: start: 20140703, end: 20140706

REACTIONS (5)
  - Erythema [None]
  - Skin disorder [None]
  - Muscle spasms [None]
  - Arthralgia [None]
  - Influenza [None]

NARRATIVE: CASE EVENT DATE: 20140706
